FAERS Safety Report 25829149 (Version 1)
Quarter: 2025Q3

REPORT INFORMATION
  Report Type: Spontaneous
  Country: EU (occurrence: EU)
  Receive Date: 20250922
  Receipt Date: 20250922
  Transmission Date: 20251021
  Serious: Yes (Hospitalization, Other)
  Sender: AUROBINDO
  Company Number: TZ-OTSUKA-2021_041360

PATIENT
  Age: 45 Year
  Sex: Female

DRUGS (9)
  1. MOXIFLOXACIN [Suspect]
     Active Substance: MOXIFLOXACIN
     Indication: Pulmonary tuberculosis
     Dosage: 400 MILLIGRAM, ONCE A DAY
     Route: 065
     Dates: start: 20210919
  2. METFORMIN [Suspect]
     Active Substance: METFORMIN HYDROCHLORIDE
     Indication: Diabetes mellitus
     Dosage: 1000 MILLIGRAM, ONCE A DAY
     Route: 048
     Dates: start: 20211117
  3. DELAMANID [Suspect]
     Active Substance: DELAMANID
     Indication: Pulmonary tuberculosis
     Dosage: 200 MILLIGRAM, ONCE A DAY
     Route: 065
     Dates: start: 20210919
  4. BEDAQUILINE [Suspect]
     Active Substance: BEDAQUILINE
     Indication: Pulmonary tuberculosis
     Dosage: 400 MILLIGRAM, ONCE A DAY
     Route: 065
     Dates: start: 20210919
  5. BEDAQUILINE [Suspect]
     Active Substance: BEDAQUILINE
     Dosage: 600 MILLIGRAM, EVERY WEEK
     Route: 065
  6. SUTEZOLID [Suspect]
     Active Substance: SUTEZOLID
     Indication: Pulmonary tuberculosis
     Dosage: 600 MILLIGRAM, ONCE A DAY
     Route: 065
     Dates: start: 20210919
  7. SUTEZOLID [Suspect]
     Active Substance: SUTEZOLID
     Dosage: 1200 MILLIGRAM, ONCE A DAY
     Route: 065
  8. SUTEZOLID [Suspect]
     Active Substance: SUTEZOLID
     Dosage: 1200 MILLIGRAM, ONCE A DAY
     Route: 065
  9. SUTEZOLID [Suspect]
     Active Substance: SUTEZOLID
     Dosage: 1600 MILLIGRAM, ONCE A DAY
     Route: 065

REACTIONS (1)
  - Electrocardiogram QT prolonged [Recovered/Resolved]

NARRATIVE: CASE EVENT DATE: 20211119
